FAERS Safety Report 8835473 (Version 2)
Quarter: 2012Q4

REPORT INFORMATION
  Report Type: 
  Country: AU (occurrence: AU)
  Receive Date: 20121011
  Receipt Date: 20121204
  Transmission Date: 20130627
  Serious: Yes (Death)
  Sender: FDA-Public Use
  Company Number: PHHY2012AU089660

PATIENT
  Sex: Female

DRUGS (1)
  1. ACLASTA [Suspect]
     Indication: OSTEOPOROSIS
     Dosage: 5 mg,
     Route: 042
     Dates: start: 20110905

REACTIONS (2)
  - Chronic obstructive pulmonary disease [Fatal]
  - Lower respiratory tract infection [Fatal]
